FAERS Safety Report 5926131-2 (Version None)
Quarter: 2008Q4

REPORT INFORMATION
  Report Type: 
  Country: None (occurrence: None)
  Receive Date: 20081016
  Receipt Date: 20081007
  Transmission Date: 20090506
  Serious: No
  Sender: FDA-Public Use
  Company Number: 2008-185032-NL

PATIENT
  Age: 23 Year
  Sex: Female

DRUGS (1)
  1. MARVELON [Suspect]
     Dosage: DF
     Dates: start: 20051211, end: 20060914

REACTIONS (4)
  - HYPERHIDROSIS [None]
  - MENTAL DISORDER [None]
  - METRORRHAGIA [None]
  - PALPITATIONS [None]
